FAERS Safety Report 8386859-4 (Version None)
Quarter: 2012Q2

REPORT INFORMATION
  Report Type: 
  Country: None (occurrence: None)
  Receive Date: 20120523
  Receipt Date: 20120511
  Transmission Date: 20120825
  Serious: Yes (Hospitalization, Other)
  Sender: FDA-Public Use
  Company Number: AUR-APL-2012-02216

PATIENT
  Age: 82 Year
  Sex: Male

DRUGS (8)
  1. AMILORIDE HCL [Concomitant]
  2. BENDROFLUMETHIAZIDE (BENDROFLUMETHIAZIDE) [Concomitant]
  3. CALCEOS (LEKOVIT CA) [Concomitant]
  4. ACETAMINOPHEN W/ CODEINE [Concomitant]
  5. WARFARIN SODIUM [Concomitant]
  6. AMLODIPINE [Concomitant]
  7. DIGOXIN [Concomitant]
  8. ALENDRONIC ACID (ALENDRONIC ACID) [Suspect]
     Indication: OSTEOPOROSIS
     Dosage: 10 MG (70 MG, 1 IN 1 WK), ORAL
     Route: 048
     Dates: end: 20120430

REACTIONS (3)
  - DUODENAL ULCER PERFORATION [None]
  - ABDOMINAL PAIN [None]
  - PNEUMOPERITONEUM [None]
